FAERS Safety Report 4899130-X (Version None)
Quarter: 2006Q1

REPORT INFORMATION
  Report Type: 
  Country: None (occurrence: None)
  Receive Date: 20060202
  Receipt Date: 20060123
  Transmission Date: 20060701
  Serious: Yes (Hospitalization)
  Sender: FDA-Public Use
  Company Number: ES-SANOFI-SYNTHELABO-A01200600496

PATIENT
  Age: 73 Year
  Sex: Female
  Weight: 80 kg

DRUGS (7)
  1. ZOLPIDEM [Suspect]
     Dosage: 10 MG
     Route: 048
     Dates: start: 19950101, end: 20051019
  2. TRANXILIUM [Suspect]
     Dosage: 26 MG
     Route: 048
     Dates: start: 19950101, end: 20051019
  3. DEPRAX [Suspect]
     Dosage: 150 MG
     Route: 048
     Dates: start: 20051017, end: 20051019
  4. TRAMADOL [Suspect]
     Dosage: 50 MG
     Route: 048
     Dates: start: 20040101, end: 20051019
  5. OMEPRAZOLE [Suspect]
     Dosage: 20 MG
     Route: 048
     Dates: start: 20040101, end: 20051019
  6. FLUOXETINE [Suspect]
     Dosage: 20 MG
     Route: 048
     Dates: start: 19950101, end: 20051019
  7. INSULINES [Concomitant]
     Dosage: UNK
     Route: 065
     Dates: start: 19950101, end: 20050101

REACTIONS (1)
  - DERMATITIS EXFOLIATIVE [None]
